FAERS Safety Report 8608504-2 (Version None)
Quarter: 2012Q3

REPORT INFORMATION
  Report Type: 
  Country: None (occurrence: None)
  Receive Date: 20120809
  Receipt Date: 20120809
  Transmission Date: 20120928
  Serious: Yes (Life-Threatening, Hospitalization)
  Sender: FDA-Public Use
  Company Number: None

PATIENT
  Age: 72 Year
  Sex: Female
  Weight: 63.5036 kg

DRUGS (15)
  1. ZYRTEC [Concomitant]
  2. ATIVAN [Concomitant]
  3. DESMOPRESSIN ACETATE [Suspect]
     Indication: ENURESIS
     Dosage: ONE TABLET AT BEDTIME, ONCE DAILY, PO
     Route: 048
  4. WELLBUTRIN [Concomitant]
  5. PREDNISOLONE [Concomitant]
  6. CELEXA [Concomitant]
  7. CATAPRES [Concomitant]
  8. IRON [Concomitant]
  9. TOPROL-XL [Concomitant]
  10. DIOVAN [Concomitant]
  11. ZELNORM [Concomitant]
  12. ARIMIDEX [Concomitant]
  13. AMBIEN [Concomitant]
  14. PREVACID [Concomitant]
  15. MERCAPTOPURINE [Concomitant]

REACTIONS (5)
  - FLUID INTAKE REDUCED [None]
  - FATIGUE [None]
  - NAUSEA [None]
  - ANURIA [None]
  - UNRESPONSIVE TO STIMULI [None]
